FAERS Safety Report 21708736 (Version 1)
Quarter: 2022Q4

REPORT INFORMATION
  Report Type: Report from Study
  Country: FR (occurrence: FR)
  Receive Date: 20221210
  Receipt Date: 20221210
  Transmission Date: 20230112
  Serious: Yes (Hospitalization, Other)
  Sender: FDA-Public Use
  Company Number: FR-TAKEDA-2022TUS093069

PATIENT
  Age: 70 Year
  Sex: Male

DRUGS (12)
  1. TEDUGLUTIDE [Suspect]
     Active Substance: TEDUGLUTIDE
     Indication: Short-bowel syndrome
     Dosage: 3.600 MILLIGRAM, QD
     Route: 042
     Dates: start: 20161221, end: 20170607
  2. TEDUGLUTIDE [Suspect]
     Active Substance: TEDUGLUTIDE
     Indication: Short-bowel syndrome
     Dosage: 3.600 MILLIGRAM, QD
     Route: 042
     Dates: start: 20161221, end: 20170607
  3. TEDUGLUTIDE [Suspect]
     Active Substance: TEDUGLUTIDE
     Indication: Short-bowel syndrome
     Dosage: 3.600 MILLIGRAM, QD
     Route: 042
     Dates: start: 20161221, end: 20170607
  4. TEDUGLUTIDE [Suspect]
     Active Substance: TEDUGLUTIDE
     Indication: Short-bowel syndrome
     Dosage: 3.600 MILLIGRAM, QD
     Route: 042
     Dates: start: 20161221, end: 20170607
  5. TEDUGLUTIDE [Suspect]
     Active Substance: TEDUGLUTIDE
     Dosage: 3.600 MILLIGRAM, QD
     Route: 042
     Dates: start: 20170607
  6. TEDUGLUTIDE [Suspect]
     Active Substance: TEDUGLUTIDE
     Dosage: 3.600 MILLIGRAM, QD
     Route: 042
     Dates: start: 20170607
  7. TEDUGLUTIDE [Suspect]
     Active Substance: TEDUGLUTIDE
     Dosage: 3.600 MILLIGRAM, QD
     Route: 042
     Dates: start: 20170607
  8. TEDUGLUTIDE [Suspect]
     Active Substance: TEDUGLUTIDE
     Dosage: 3.600 MILLIGRAM, QD
     Route: 042
     Dates: start: 20170607
  9. TAMSULOSIN HYDROCHLORIDE [Concomitant]
     Active Substance: TAMSULOSIN HYDROCHLORIDE
     Indication: Prophylaxis
     Dosage: 0.40 MILLIGRAM, QD
     Route: 048
     Dates: start: 20220425
  10. VESICARE [Concomitant]
     Active Substance: SOLIFENACIN SUCCINATE
     Indication: Prophylaxis
     Dosage: 5.00 MILLIGRAM, QD
     Route: 048
     Dates: start: 20220425
  11. BISOPROLOL FUMARATE [Concomitant]
     Active Substance: BISOPROLOL FUMARATE
     Indication: Prophylaxis
     Dosage: 1.25 MILLIGRAM, BID
     Route: 048
     Dates: start: 20220425
  12. LERCANIDIPINE [Concomitant]
     Active Substance: LERCANIDIPINE
     Indication: Hypertension
     Dosage: 10.00 MILLIGRAM, QD
     Route: 048
     Dates: start: 20201110

REACTIONS (2)
  - Renal failure [Recovered/Resolved]
  - Diarrhoea [Recovered/Resolved]

NARRATIVE: CASE EVENT DATE: 20220103
